FAERS Safety Report 23036384 (Version 1)
Quarter: 2023Q4

REPORT INFORMATION
  Report Type: Spontaneous
  Country: CN (occurrence: CN)
  Receive Date: 20231006
  Receipt Date: 20231006
  Transmission Date: 20240110
  Serious: Yes (Other)
  Sender: FDA-Public Use
  Company Number: CN-JNJFOC-20230960462

PATIENT

DRUGS (1)
  1. SPORANOX [Interacting]
     Active Substance: ITRACONAZOLE
     Indication: Product used for unknown indication
     Dosage: (SPORANOX, 100 MG*14 CAPSULES/BOX) FOR 25 DAYS
     Route: 048
     Dates: start: 2023

REACTIONS (2)
  - Blood creatine phosphokinase increased [Recovering/Resolving]
  - Drug interaction [Unknown]

NARRATIVE: CASE EVENT DATE: 20230101
